FAERS Safety Report 12953198 (Version 1)
Quarter: 2016Q4

REPORT INFORMATION
  Report Type: Spontaneous
  Country: DE (occurrence: DE)
  Receive Date: 20161117
  Receipt Date: 20161117
  Transmission Date: 20170207
  Serious: Yes (Other)
  Sender: FDA-Public Use
  Company Number: DE-ELI_LILLY_AND_COMPANY-DE201611003387

PATIENT
  Age: 60 Year
  Sex: Female

DRUGS (2)
  1. FORSTEO [Suspect]
     Active Substance: TERIPARATIDE
     Dosage: 40 UG, QOD
     Route: 058
     Dates: start: 20160920, end: 20161005
  2. FORSTEO [Suspect]
     Active Substance: TERIPARATIDE
     Indication: MEDICAL ANABOLIC THERAPY
     Dosage: 40 UG, UNKNOWN
     Route: 058
     Dates: start: 20160422

REACTIONS (5)
  - Osteonecrosis [Unknown]
  - Off label use [Unknown]
  - Chronic kidney disease-mineral and bone disorder [Unknown]
  - Osteonecrosis [Unknown]
  - Overdose [Unknown]

NARRATIVE: CASE EVENT DATE: 20160422
